FAERS Safety Report 7374159-0 (Version None)
Quarter: 2011Q1

REPORT INFORMATION
  Report Type: 
  Country: None (occurrence: None)
  Receive Date: 20110315
  Receipt Date: 20110308
  Transmission Date: 20110831
  Serious: Yes (Hospitalization)
  Sender: FDA-Public Use
  Company Number: 021542

PATIENT
  Sex: Male

DRUGS (3)
  1. KEPPRA [Suspect]
     Dosage: (500 MG BID)
  2. CONCOR /00802601/ [Concomitant]
  3. MARCUMAR [Concomitant]

REACTIONS (1)
  - DELIRIUM [None]
